FAERS Safety Report 6325690-8 (Version None)
Quarter: 2009Q3

REPORT INFORMATION
  Report Type: 
  Country: None (occurrence: None)
  Receive Date: 20090824
  Receipt Date: 20090811
  Transmission Date: 20100115
  Serious: Yes (Hospitalization)
  Sender: FDA-Public Use
  Company Number: US-ALEXION-A200900584

PATIENT
  Sex: Male

DRUGS (14)
  1. SOLIRIS [Suspect]
     Indication: PAROXYSMAL NOCTURNAL HAEMOGLOBINURIA
     Dosage: 600 MG, QW
     Route: 042
     Dates: start: 20070713, end: 20070803
  2. SOLIRIS [Suspect]
     Dosage: 900 MG, UNK
     Route: 042
     Dates: start: 20070810, end: 20081003
  3. SOLIRIS [Suspect]
     Dosage: UNK
     Route: 042
     Dates: start: 20081006
  4. SOLIRIS [Suspect]
     Dosage: UNK
     Route: 042
  5. SOLIRIS [Suspect]
     Dosage: 600 MG, QW
     Route: 042
     Dates: start: 20090305, end: 20090323
  6. SOLIRIS [Suspect]
     Dosage: 900 MG, Q2W
     Route: 042
  7. METOPROLOL [Concomitant]
     Dosage: 60 MG, BID
     Route: 048
  8. NORVASC [Concomitant]
     Dosage: UNK
     Route: 048
  9. NOVOLOG [Concomitant]
     Dosage: PUMP
  10. LOVENOX [Concomitant]
     Dosage: 80 MG, BID
  11. OXYCONTIN [Concomitant]
     Dosage: 40 MG, BID
     Route: 048
  12. FOLIC ACID [Concomitant]
     Dosage: UNK
     Route: 048
  13. NEXIUM [Concomitant]
     Dosage: UNK
     Route: 048
  14. REGLAN [Concomitant]
     Dosage: UNK
     Route: 048

REACTIONS (8)
  - BLOOD LACTATE DEHYDROGENASE INCREASED [None]
  - DEHYDRATION [None]
  - HAEMATOCRIT DECREASED [None]
  - HAEMOGLOBIN DECREASED [None]
  - HAEMOGLOBINURIA [None]
  - PLATELET COUNT DECREASED [None]
  - RENAL FAILURE ACUTE [None]
  - WHITE BLOOD CELL COUNT DECREASED [None]
